APPROVED DRUG PRODUCT: MINOCYCLINE HYDROCHLORIDE
Active Ingredient: MINOCYCLINE HYDROCHLORIDE
Strength: EQ 75MG BASE
Dosage Form/Route: TABLET;ORAL
Application: A090217 | Product #002
Applicant: SUN PHARMACEUTICAL INDUSTRIES INC
Approved: Jan 29, 2016 | RLD: No | RS: No | Type: DISCN